FAERS Safety Report 9529568 (Version 1)
Quarter: 2013Q3

REPORT INFORMATION
  Report Type: Spontaneous
  Country: US (occurrence: US)
  Receive Date: 20130917
  Receipt Date: 20130917
  Transmission Date: 20140515
  Serious: Yes (Other)
  Sender: FDA-Public Use
  Company Number: PHEH2013US019379

PATIENT
  Sex: Female

DRUGS (1)
  1. ZOMETA [Suspect]
     Dosage: UNK UKN, EVERY 6 MONTHS

REACTIONS (4)
  - Breast cancer [Unknown]
  - Vitamin D abnormal [Unknown]
  - Osteopenia [Unknown]
  - Osteoarthritis [Unknown]
